FAERS Safety Report 7486211-X (Version None)
Quarter: 2011Q2

REPORT INFORMATION
  Report Type: 
  Country: None (occurrence: None)
  Receive Date: 20110517
  Receipt Date: 20110121
  Transmission Date: 20111010
  Serious: No
  Sender: FDA-Public Use
  Company Number: A0908038A

PATIENT
  Age: 77 Year
  Sex: Female

DRUGS (5)
  1. VITAMIN D [Concomitant]
  2. VOTRIENT [Suspect]
     Dosage: 400MG PER DAY
     Route: 048
     Dates: start: 20100101
  3. MULTI-VITAMIN [Concomitant]
  4. MAGNESIUM [Concomitant]
  5. DOXYCYCLINE [Concomitant]

REACTIONS (2)
  - MEMORY IMPAIRMENT [None]
  - NERVOUSNESS [None]
